FAERS Safety Report 4558079-2 (Version None)
Quarter: 2005Q1

REPORT INFORMATION
  Report Type: 
  Country: None (occurrence: None)
  Receive Date: 20050121
  Receipt Date: 20040922
  Transmission Date: 20050727
  Serious: No
  Sender: FDA-Public Use
  Company Number: US-BRISTOL-MYERS SQUIBB COMPANY-12708665

PATIENT
  Age: 53 Year
  Sex: Female
  Weight: 82 kg

DRUGS (10)
  1. SERZONE [Suspect]
     Route: 048
  2. XYREM [Suspect]
     Indication: INSOMNIA
     Dosage: DOSE RANGE:  3 GRAMS BID INCREASED TO 16 GRAMS BID
     Route: 048
  3. XYREM [Suspect]
     Indication: FIBROMYALGIA
     Dosage: DOSE RANGE:  3 GRAMS BID INCREASED TO 16 GRAMS BID
     Route: 048
  4. XANAX [Concomitant]
  5. ACIPHEX [Concomitant]
  6. TOPAMAX [Concomitant]
  7. LEXAPRO [Concomitant]
  8. PROVIGIL [Concomitant]
  9. HYDROCHLOROTHIAZIDE [Concomitant]
  10. IMITREX [Concomitant]

REACTIONS (4)
  - ANXIETY [None]
  - DRUG WITHDRAWAL SYNDROME [None]
  - MIGRAINE [None]
  - NAUSEA [None]
